FAERS Safety Report 23878360 (Version 1)
Quarter: 2024Q2

REPORT INFORMATION
  Report Type: Spontaneous
  Country: US (occurrence: None)
  Receive Date: 20240520
  Receipt Date: 20240520
  Transmission Date: 20240716
  Serious: Yes (Congenital Anomaly)
  Sender: FDA-Public Use
  Company Number: None

PATIENT
  Sex: Male
  Weight: 2.91 kg

DRUGS (3)
  1. SODIUM OXYBATE [Suspect]
     Active Substance: SODIUM OXYBATE
  2. SODIUM OXYBATE (MATERNAL MEDICATION) [Concomitant]
  3. METHYLPHENIDATE (MATERNAL MEDICATION) [Concomitant]

REACTIONS (4)
  - Dysphagia [None]
  - Aspiration [None]
  - Weight decreased [None]
  - Eosinophilic oesophagitis [None]

NARRATIVE: CASE EVENT DATE: 20201123
